FAERS Safety Report 17501461 (Version 1)
Quarter: 2020Q1

REPORT INFORMATION
  Report Type: Spontaneous
  Country: US (occurrence: US)
  Receive Date: 20200305
  Receipt Date: 20200305
  Transmission Date: 20200409
  Serious: Yes (Hospitalization, Other)
  Sender: FDA-Public Use
  Company Number: US-PFIZER INC-2020096608

PATIENT
  Age: 76 Year
  Sex: Female

DRUGS (2)
  1. DILANTIN [Suspect]
     Active Substance: PHENYTOIN
     Dosage: 400 MG, ALTERNATE DAY(ALTERNATES 100MG. ONE DAY SHE TAKES 4 A DAY, AND THE OTHER SHE TAKES 3 A DAY)
  2. DILANTIN [Suspect]
     Active Substance: PHENYTOIN
     Dosage: 300 MG, ALTERNATE DAY (ALTERNATES 100MG. ONE DAY SHE TAKES 4 A DAY, AND THE OTHER SHE TAKES 3 A DAY)

REACTIONS (4)
  - Intentional product misuse [Unknown]
  - Femur fracture [Unknown]
  - Bone disorder [Unknown]
  - Bone density decreased [Unknown]

NARRATIVE: CASE EVENT DATE: 20181219
